FAERS Safety Report 19997638 (Version 1)
Quarter: 2021Q4

REPORT INFORMATION
  Report Type: Spontaneous
  Country: FI (occurrence: FI)
  Receive Date: 20211026
  Receipt Date: 20211026
  Transmission Date: 20220303
  Serious: Yes (Hospitalization)
  Sender: FDA-Public Use
  Company Number: FI-NOVOPROD-858450

PATIENT
  Age: 60 Year
  Sex: Female

DRUGS (1)
  1. OZEMPIC [Suspect]
     Active Substance: SEMAGLUTIDE
     Indication: Product used for unknown indication
     Dosage: UNK
     Route: 065
     Dates: start: 2021, end: 2021

REACTIONS (3)
  - Atrial fibrillation [Unknown]
  - Dehydration [Unknown]
  - Nausea [Unknown]

NARRATIVE: CASE EVENT DATE: 20210101
